FAERS Safety Report 4329858-1 (Version None)
Quarter: 2004Q1

REPORT INFORMATION
  Report Type: 
  Country: None (occurrence: None)
  Receive Date: 20040329
  Receipt Date: 20040319
  Transmission Date: 20041129
  Serious: Yes (Hospitalization)
  Sender: FDA-Public Use
  Company Number: FR-JNJFOC-20040304450

PATIENT
  Age: 63 Year
  Sex: Male

DRUGS (8)
  1. TRAMADOL HCL [Suspect]
     Indication: DRUG USE FOR UNKNOWN INDICATION
     Dosage: 250 MG, 1 IN 1 DAY, INTRAVENOUS
     Route: 042
     Dates: start: 20040216
  2. PEFLACINE (PEFLOXACIN MESILATE) [Suspect]
     Indication: DRUG USE FOR UNKNOWN INDICATION
     Dosage: 400 MG, INTRAVENOUS
     Route: 042
     Dates: start: 20040216
  3. GENTAMICIN SULFATE [Suspect]
     Indication: DRUG USE FOR UNKNOWN INDICATION
     Dosage: 160 MG, INTRAVENOUS
     Route: 042
     Dates: start: 20040216
  4. PERFALGAN (ALL OTHER THERAPEUTIC PRODUCTS) [Suspect]
     Indication: DRUG USE FOR UNKNOWN INDICATION
     Dosage: 5 G, 1 IN 1 DAY, INTRAVENOUS
     Route: 042
     Dates: start: 20040216
  5. DYNASTAT (PARECOXIB) [Suspect]
     Indication: DRUG USE FOR UNKNOWN INDICATION
     Dosage: 80 MG, 1 IN 1 DAY, INTRAVENOUS
     Route: 042
     Dates: start: 20030416
  6. PHYSIOTENS (MOXONIDINE) [Concomitant]
  7. APROVEL (IRBESARTAN) [Concomitant]
  8. INDAPAMIDE [Concomitant]

REACTIONS (2)
  - DRUG INTERACTION [None]
  - RENAL FAILURE ACUTE [None]
